FAERS Safety Report 8386669-8 (Version None)
Quarter: 2012Q2

REPORT INFORMATION
  Report Type: 
  Country: None (occurrence: None)
  Receive Date: 20120525
  Receipt Date: 20120522
  Transmission Date: 20120825
  Serious: Yes (Other)
  Sender: FDA-Public Use
  Company Number: US-PFIZER INC-2012124241

PATIENT
  Sex: Female
  Weight: 58.957 kg

DRUGS (12)
  1. PRILOSEC [Concomitant]
     Indication: GASTROOESOPHAGEAL REFLUX DISEASE
     Dosage: 20 MG, TWICE A DAY
  2. VITAMIN B-12 [Concomitant]
     Dosage: 200 MG, DAILY
  3. HYZAAR [Suspect]
     Indication: HYPERTENSION
     Dosage: 100/25MG,DAILY
  4. NAPROXEN (ALEVE) [Concomitant]
     Indication: ARTHRALGIA
     Dosage: 220 MG, DAILY
  5. LIPITOR [Suspect]
     Indication: BLOOD CHOLESTEROL INCREASED
     Dosage: UNK
     Route: 048
  6. MULTI-VITAMINS [Concomitant]
     Dosage: UNK, DAILY
  7. VITAMIN D [Concomitant]
     Indication: BONE DISORDER
     Dosage: 1000 IU, DAILY
  8. ASPIRIN [Concomitant]
     Indication: CARDIAC DISORDER
     Dosage: 81 MG, DAILY
  9. ATORVASTATIN CALCIUM [Suspect]
     Indication: BLOOD CHOLESTEROL INCREASED
     Dosage: 10 MG, DAILY
     Dates: start: 20111219, end: 20120401
  10. ATENOLOL [Suspect]
     Indication: HYPERTENSION
     Dosage: 50 MG, DAILY
  11. NAPROXEN (ALEVE) [Concomitant]
     Indication: PAIN IN EXTREMITY
  12. NAPROXEN (ALEVE) [Concomitant]
     Indication: ARTHRITIS

REACTIONS (2)
  - ALOPECIA [None]
  - HYPERTENSION [None]
